FAERS Safety Report 4649359-0 (Version None)
Quarter: 2005Q2

REPORT INFORMATION
  Report Type: 
  Country: None (occurrence: None)
  Receive Date: 20050429
  Receipt Date: 20050421
  Transmission Date: 20051028
  Serious: Yes (Hospitalization)
  Sender: FDA-Public Use
  Company Number: US-AMGEN-US128026

PATIENT
  Sex: Male

DRUGS (4)
  1. NEULASTA [Suspect]
     Indication: CHEMOTHERAPY
     Dates: start: 20050401
  2. ETOPOSIDE [Concomitant]
     Dates: start: 20050401
  3. CARBOPLATIN [Concomitant]
     Dates: start: 20050401
  4. RADIATION THERAPY [Concomitant]
     Dates: start: 20050401

REACTIONS (2)
  - DRUG INEFFECTIVE [None]
  - NEUTROPENIA [None]
